FAERS Safety Report 5493431-2 (Version None)
Quarter: 2007Q4

REPORT INFORMATION
  Report Type: 
  Country: None (occurrence: None)
  Receive Date: 20071019
  Receipt Date: 20071009
  Transmission Date: 20080405
  Serious: Yes (Other)
  Sender: FDA-Public Use
  Company Number: 2007332974

PATIENT
  Age: 27 Year
  Sex: Male

DRUGS (1)
  1. ROGAINE [Suspect]
     Indication: ALOPECIA
     Dosage: UNSPECIFIED, TOPICAL
     Route: 061
     Dates: start: 20070101

REACTIONS (1)
  - SYNCOPE [None]
